FAERS Safety Report 7078343-5 (Version None)
Quarter: 2010Q4

REPORT INFORMATION
  Report Type: 
  Country: None (occurrence: None)
  Receive Date: 20101102
  Receipt Date: 20101026
  Transmission Date: 20110411
  Serious: Yes (Other)
  Sender: FDA-Public Use
  Company Number: CZ-BAYER-201042603GPV

PATIENT
  Age: 30 Year
  Sex: Female

DRUGS (1)
  1. QLAIRA [Suspect]
     Indication: ORAL CONTRACEPTION
     Route: 048
     Dates: start: 20091001, end: 20100701

REACTIONS (4)
  - ABORTION SPONTANEOUS [None]
  - ANTEPARTUM HAEMORRHAGE [None]
  - DRUG EXPOSURE DURING PREGNANCY [None]
  - PREGNANCY ON ORAL CONTRACEPTIVE [None]
